FAERS Safety Report 7093564-3 (Version None)
Quarter: 2010Q4

REPORT INFORMATION
  Report Type: 
  Country: None (occurrence: None)
  Receive Date: 20101110
  Receipt Date: 20101102
  Transmission Date: 20110411
  Serious: Yes (Hospitalization)
  Sender: FDA-Public Use
  Company Number: FR-SANOFI-AVENTIS-2010SA066542

PATIENT
  Age: 63 Year
  Sex: Male

DRUGS (6)
  1. PLAVIX [Suspect]
     Route: 048
     Dates: start: 20100716
  2. COVERSYL /FRA/ [Suspect]
     Route: 048
     Dates: start: 20100831, end: 20100924
  3. TAHOR [Suspect]
     Route: 048
     Dates: start: 20100715, end: 20100924
  4. LAROXYL [Suspect]
     Route: 048
     Dates: start: 20100715
  5. SEROPLEX [Suspect]
     Route: 048
     Dates: start: 20100716, end: 20100924
  6. LIORESAL [Suspect]
     Route: 048
     Dates: start: 20100715

REACTIONS (4)
  - CHOLESTASIS [None]
  - CYTOLYTIC HEPATITIS [None]
  - LIPASE INCREASED [None]
  - PANCREATITIS ACUTE [None]
